FAERS Safety Report 5870813-8 (Version None)
Quarter: 2008Q3

REPORT INFORMATION
  Report Type: 
  Country: None (occurrence: None)
  Receive Date: 20080904
  Receipt Date: 20080826
  Transmission Date: 20090109
  Serious: Yes (Hospitalization)
  Sender: FDA-Public Use
  Company Number: FR-JNJFOC-20080600001

PATIENT
  Sex: Female

DRUGS (4)
  1. RISPERDAL [Suspect]
     Indication: BIPOLAR DISORDER
     Route: 048
  2. TERCIAN [Suspect]
     Indication: BIPOLAR DISORDER
     Route: 048
  3. ZOPICLONE [Suspect]
     Indication: BIPOLAR DISORDER
     Route: 048
  4. TARDYFERON [Suspect]
     Indication: DRUG USE FOR UNKNOWN INDICATION
     Route: 048

REACTIONS (3)
  - AGITATION [None]
  - OVERDOSE [None]
  - STRESS CARDIOMYOPATHY [None]
